FAERS Safety Report 6305695-3 (Version None)
Quarter: 2009Q3

REPORT INFORMATION
  Report Type: 
  Country: None (occurrence: None)
  Receive Date: 20090807
  Receipt Date: 20090727
  Transmission Date: 20100115
  Serious: Yes (Hospitalization)
  Sender: FDA-Public Use
  Company Number: 233187K08USA

PATIENT
  Age: 56 Year
  Sex: Female
  Weight: 59 kg

DRUGS (8)
  1. REBIF [Suspect]
     Indication: MULTIPLE SCLEROSIS
     Dosage: 44 MCG, 3 IN 1 WEEKS, SUBCUTANEOUS
     Dates: start: 20040604, end: 20080301
  2. LISINOPRIL [Concomitant]
  3. TIZANIDINE HCL [Concomitant]
  4. NAPROXEN [Concomitant]
  5. NEURONTIN [Concomitant]
  6. PREMPRO (PROVELLA-14) [Concomitant]
  7. VISICARE (SOLIFENACIN) [Concomitant]
  8. METHOTREXATE [Concomitant]

REACTIONS (10)
  - BLOOD PRESSURE DECREASED [None]
  - CHOLECYSTITIS INFECTIVE [None]
  - FATIGUE [None]
  - INJECTION SITE ERYTHEMA [None]
  - INJECTION SITE PRURITUS [None]
  - INJECTION SITE REACTION [None]
  - INJECTION SITE URTICARIA [None]
  - NEPHROLITHIASIS [None]
  - PNEUMONIA [None]
  - URINARY TRACT INFECTION [None]
